FAERS Safety Report 24859193 (Version 1)
Quarter: 2025Q1

REPORT INFORMATION
  Report Type: Spontaneous
  Country: US (occurrence: US)
  Receive Date: 20250118
  Receipt Date: 20250118
  Transmission Date: 20250409
  Serious: Yes (Death, Life-Threatening, Hospitalization)
  Sender: AMGEN
  Company Number: US-AMGEN-USASP2025007914

PATIENT

DRUGS (1)
  1. IMDELLTRA [Suspect]
     Active Substance: TARLATAMAB-DLLE
     Indication: Product used for unknown indication
     Route: 042
     Dates: start: 20250107, end: 20250107

REACTIONS (2)
  - Endotracheal intubation [Unknown]
  - Death [Fatal]

NARRATIVE: CASE EVENT DATE: 20250101
